FAERS Safety Report 6325866-X (Version None)
Quarter: 2009Q3

REPORT INFORMATION
  Report Type: 
  Country: None (occurrence: None)
  Receive Date: 20090824
  Receipt Date: 20090812
  Transmission Date: 20100115
  Serious: Yes (Death, Hospitalization)
  Sender: FDA-Public Use
  Company Number: GB-JNJFOC-20090406083

PATIENT
  Age: 83 Year
  Sex: Female
  Weight: 80 kg

DRUGS (11)
  1. REMICADE [Suspect]
     Indication: RHEUMATOID ARTHRITIS
     Route: 042
  2. SULFASALAZINE [Concomitant]
  3. METHOTREXATE [Concomitant]
  4. PREDNISOLONE [Concomitant]
  5. CARDURA [Concomitant]
  6. FERROUS SULFATE TAB [Concomitant]
  7. FOLIC ACID [Concomitant]
  8. REMEDEINE [Concomitant]
  9. ZANTAC [Concomitant]
  10. MINOCYCLINE HCL [Concomitant]
  11. AURANOFIN [Concomitant]

REACTIONS (3)
  - CLOSTRIDIAL INFECTION [None]
  - GASTROENTERITIS [None]
  - MYOCARDIAL INFARCTION [None]
